FAERS Safety Report 16820496 (Version 1)
Quarter: 2019Q3

REPORT INFORMATION
  Report Type: Spontaneous
  Country: CN (occurrence: CN)
  Receive Date: 20190918
  Receipt Date: 20190918
  Transmission Date: 20191005
  Serious: Yes (Hospitalization, Other)
  Sender: FDA-Public Use
  Company Number: CN-LUPIN PHARMACEUTICALS INC.-2019-01236

PATIENT
  Age: 60 Year
  Sex: Female

DRUGS (2)
  1. CEFUROXIME AXETIL TABLETS [Suspect]
     Active Substance: CEFUROXIME AXETIL
     Indication: OROPHARYNGEAL PAIN
  2. CEFUROXIME AXETIL TABLETS [Suspect]
     Active Substance: CEFUROXIME AXETIL
     Indication: COUGH
     Dosage: 1 DOSAGE FORM, SINGLE
     Route: 048

REACTIONS (1)
  - Anaphylactic reaction [Unknown]
